FAERS Safety Report 10511912 (Version 1)
Quarter: 2014Q4

REPORT INFORMATION
  Report Type: Spontaneous
  Country: US (occurrence: US)
  Receive Date: 20141010
  Receipt Date: 20141010
  Transmission Date: 20150528
  Serious: Yes (Other)
  Sender: FDA-Public Use
  Company Number: US-PFIZER INC-2014276695

PATIENT
  Age: 98 Year
  Sex: Male
  Weight: 74.83 kg

DRUGS (1)
  1. NEURONTIN [Suspect]
     Active Substance: GABAPENTIN
     Indication: GOUT
     Dosage: UNK

REACTIONS (9)
  - Herpes zoster [Unknown]
  - Pain [Unknown]
  - Sleep disorder [Unknown]
  - Erythema [Unknown]
  - Weight decreased [Unknown]
  - Urticaria [Unknown]
  - Depression [Unknown]
  - Vision blurred [Unknown]
  - Pruritus [Unknown]
